FAERS Safety Report 5918474-3 (Version None)
Quarter: 2008Q4

REPORT INFORMATION
  Report Type: 
  Country: None (occurrence: None)
  Receive Date: 20081014
  Receipt Date: 20081014
  Transmission Date: 20090506
  Serious: Yes (Hospitalization)
  Sender: FDA-Public Use
  Company Number: None

PATIENT
  Sex: Male

DRUGS (37)
  1. OXALIPLATIN 130MG/M2 [Suspect]
     Indication: OESOPHAGEAL CARCINOMA
     Dosage: 834 ONCE Q3 WK IV
     Route: 042
     Dates: end: 20080326
  2. OXALIPLATIN 130MG/M2 [Suspect]
     Indication: OESOPHAGEAL CARCINOMA
     Dosage: 834 ONCE Q3 WK IV
     Route: 042
     Dates: end: 20080416
  3. OXALIPLATIN 130MG/M2 [Suspect]
     Indication: OESOPHAGEAL CARCINOMA
     Dosage: 834 ONCE Q3 WK IV
     Route: 042
     Dates: end: 20080507
  4. EPIRUBICIN [Suspect]
     Indication: OESOPHAGEAL CARCINOMA
     Dosage: 321 MG ONCE Q3 WK IV
     Route: 042
     Dates: end: 20080326
  5. EPIRUBICIN [Suspect]
     Indication: OESOPHAGEAL CARCINOMA
     Dosage: 321 MG ONCE Q3 WK IV
     Route: 042
     Dates: end: 20080416
  6. EPIRUBICIN [Suspect]
     Indication: OESOPHAGEAL CARCINOMA
     Dosage: 321 MG ONCE Q3 WK IV
     Route: 042
     Dates: end: 20080507
  7. FLUOROURACIL [Suspect]
     Indication: OESOPHAGEAL CARCINOMA
     Dosage: 20972 MG CONTINUOUS IV
     Route: 042
     Dates: start: 20080326, end: 20080521
  8. FLUOROURACIL [Suspect]
     Indication: OESOPHAGEAL CARCINOMA
     Dosage: 8240 MG CONTINUOUS IV
     Route: 042
     Dates: start: 20080804, end: 20080808
  9. CISPLATIN [Suspect]
     Indication: OESOPHAGEAL CARCINOMA
     Dosage: 164 MG CONTINUOUS IV
     Route: 042
     Dates: start: 20080804, end: 20080808
  10. FLUOROURACIL [Suspect]
     Indication: OESOPHAGEAL CARCINOMA
     Dosage: 8280 MG CONTINUOUS IV
     Route: 042
     Dates: start: 20080825, end: 20080829
  11. CISPLATIN [Suspect]
     Indication: OESOPHAGEAL CARCINOMA
     Dosage: 164 MG CONTINUOUS IV
     Route: 042
     Dates: start: 20080825, end: 20080828
  12. DEXAMETHASONE [Suspect]
     Indication: NAUSEA
     Dosage: 10 MG ONCE IV
     Route: 042
     Dates: end: 20080326
  13. DEXAMETHASONE [Suspect]
     Indication: NAUSEA
     Dosage: 10 MG ONCE IV
     Route: 042
     Dates: end: 20080416
  14. DEXAMETHASONE [Suspect]
     Indication: NAUSEA
     Dosage: 10 MG ONCE IV
     Route: 042
     Dates: end: 20080507
  15. KYTRIL [Suspect]
     Indication: NAUSEA
     Dosage: 1 MG ONCE IV
     Route: 042
     Dates: end: 20080326
  16. KYTRIL [Suspect]
     Indication: NAUSEA
     Dosage: 1 MG ONCE IV
     Route: 042
     Dates: end: 20080416
  17. KYTRIL [Suspect]
     Indication: NAUSEA
     Dosage: 1 MG ONCE IV
     Route: 042
     Dates: end: 20080507
  18. BENADRYL [Suspect]
     Indication: NAUSEA
     Dosage: 25 MG ONCE IV
     Route: 042
     Dates: end: 20080326
  19. BENADRYL [Suspect]
     Indication: NAUSEA
     Dosage: 25 MG ONCE IV
     Route: 042
     Dates: end: 20080416
  20. BENADRYL [Suspect]
     Indication: NAUSEA
     Dosage: 25 MG ONCE IV
     Route: 042
     Dates: end: 20080507
  21. COMPAZINE [Suspect]
     Indication: NAUSEA
     Dosage: 10 MG PRN PO
     Route: 048
     Dates: start: 20080325, end: 20080521
  22. COMPAZINE [Suspect]
     Indication: NAUSEA
     Dosage: 10 MG PRN PO
     Route: 048
     Dates: start: 20080804, end: 20080911
  23. DEXAMETHASONE [Suspect]
     Indication: NAUSEA
     Dosage: 4 MG QD X 4 DAYS PO
     Route: 048
     Dates: start: 20080327
  24. DEXAMETHASONE [Suspect]
     Indication: NAUSEA
     Dosage: 4 MG QD X 4 DAYS PO
     Route: 048
     Dates: start: 20080417
  25. DEXAMETHASONE [Suspect]
     Indication: NAUSEA
     Dosage: 4 MG QD X 4 DAYS PO
     Route: 048
     Dates: start: 20080508
  26. KYTRIL [Suspect]
     Indication: NAUSEA
     Dosage: 1 MG QD X 5 DAYS PO
     Route: 048
     Dates: start: 20080327
  27. KYTRIL [Suspect]
     Indication: NAUSEA
     Dosage: 1 MG QD X 5 DAYS PO
     Route: 048
     Dates: start: 20080417
  28. KYTRIL [Suspect]
     Indication: NAUSEA
     Dosage: 1 MG QD X 5 DAYS PO
     Route: 048
     Dates: start: 20080508
  29. LOVENOX [Suspect]
     Indication: THROMBOSIS PROPHYLAXIS
     Dosage: 80 MG Q 12 HOURS SQ
     Route: 058
     Dates: start: 20080805, end: 20080808
  30. ZOFRAN [Suspect]
     Indication: NAUSEA
     Dosage: 8 MG Q 8 HR AND PRN IV
     Route: 042
     Dates: start: 20080804, end: 20080808
  31. ZOFRAN [Suspect]
     Indication: NAUSEA
     Dosage: 8 MG Q 8 HR AND PRN IV
     Route: 042
     Dates: start: 20080825, end: 20080829
  32. DEXAMETHASONE [Suspect]
     Indication: NAUSEA
     Dosage: 10 MG PRN IV
     Route: 042
     Dates: start: 20080804, end: 20080808
  33. DEXAMETHASONE [Suspect]
     Indication: NAUSEA
     Dosage: 10 MG PRN IV
     Route: 042
     Dates: start: 20080825, end: 20080829
  34. KYTRIL [Suspect]
     Indication: NAUSEA
     Dosage: 1 MG QD X 5 DAYS PO
     Route: 048
     Dates: start: 20080809, end: 20080930
  35. ZOFRAN [Suspect]
     Indication: NAUSEA
     Dosage: 8 MG Q 12 HR X 5 DAYS PO
     Route: 048
     Dates: start: 20080808, end: 20080829
  36. REGLAN [Suspect]
     Indication: NAUSEA
     Dosage: 10 MG Q 6 HOURS PO
     Route: 048
     Dates: start: 20080820
  37. ACETAMINOPHEN AND OXYCODONE HCL [Suspect]
     Indication: PROCEDURAL PAIN
     Dosage: 5MG/325MG 1-2 TAB Q4HR PRN PO
     Route: 048
     Dates: start: 20080626

REACTIONS (1)
  - POSTOPERATIVE WOUND COMPLICATION [None]
